FAERS Safety Report 5441487-5 (Version None)
Quarter: 2007Q3

REPORT INFORMATION
  Report Type: 
  Country: None (occurrence: None)
  Receive Date: 20070904
  Receipt Date: 20070827
  Transmission Date: 20080115
  Serious: Yes (Other)
  Sender: FDA-Public Use
  Company Number: PHBS2007US14274

PATIENT
  Age: 18 Year
  Sex: Female

DRUGS (1)
  1. METHERGINE [Suspect]
     Indication: UTERINE ATONY
     Dosage: 0.2 MG, ONCE/SINGLE

REACTIONS (8)
  - BLOOD PRESSURE INCREASED [None]
  - CARDIAC FAILURE [None]
  - ELECTROCARDIOGRAM ST SEGMENT DEPRESSION [None]
  - HYPOKINESIA [None]
  - PNEUMOTHORAX [None]
  - TACHYCARDIA [None]
  - TROPONIN I INCREASED [None]
  - VENTRICULAR HYPOKINESIA [None]
